FAERS Safety Report 14524780 (Version 2)
Quarter: 2018Q1

REPORT INFORMATION
  Report Type: Spontaneous
  Country: CA (occurrence: CA)
  Receive Date: 20180213
  Receipt Date: 20180222
  Transmission Date: 20180509
  Serious: Yes (Hospitalization)
  Sender: FDA-Public Use
  Company Number: CA-BAUSCH-BL-2018-003691

PATIENT

DRUGS (1)
  1. DIASTAT [Suspect]
     Active Substance: DIAZEPAM
     Indication: SEIZURE
     Dosage: SYRINGE
     Route: 065

REACTIONS (3)
  - Drug ineffective [Unknown]
  - Epilepsy [Unknown]
  - Syringe issue [Unknown]
